FAERS Safety Report 23389599 (Version 1)
Quarter: 2024Q1

REPORT INFORMATION
  Report Type: Report from Study
  Country: US (occurrence: US)
  Receive Date: 20240111
  Receipt Date: 20240111
  Transmission Date: 20240410
  Serious: Yes (Hospitalization)
  Sender: FDA-Public Use
  Company Number: US-ABBVIE-5578917

PATIENT
  Age: 36 Year
  Sex: Female

DRUGS (1)
  1. SKYRIZI [Suspect]
     Active Substance: RISANKIZUMAB-RZAA
     Indication: Psoriasis
     Route: 058
     Dates: start: 20231127

REACTIONS (3)
  - Gingival pain [Recovering/Resolving]
  - Implant site swelling [Recovering/Resolving]
  - Dental implantation [Recovering/Resolving]

NARRATIVE: CASE EVENT DATE: 20240103
